FAERS Safety Report 11151117 (Version 2)
Quarter: 2015Q3

REPORT INFORMATION
  Report Type: Spontaneous
  Country: US (occurrence: None)
  Receive Date: 20150528
  Receipt Date: 20150715
  Transmission Date: 20151125
  Serious: Yes (Life-Threatening, Hospitalization, Other)
  Sender: FDA-Public Use
  Company Number: RAP-001033-2015

PATIENT
  Age: 29 Year
  Sex: Female
  Weight: 49.9 kg

DRUGS (3)
  1. BISACODYL (BISACODYL) [Concomitant]
     Active Substance: BISACODYL
  2. PROCYSBI DELAYED-RELEASE [Suspect]
     Active Substance: CYSTEAMINE BITARTRATE
     Indication: CYSTINOSIS
     Route: 048
     Dates: start: 201307, end: 201503
  3. DILAUDID [Suspect]
     Active Substance: HYDROMORPHONE HYDROCHLORIDE
     Indication: PRODUCT USED FOR UNKNOWN INDICATION
     Route: 048

REACTIONS (6)
  - Dysphagia [None]
  - Blood disorder [None]
  - Gastrointestinal disorder [None]
  - Pneumonia [None]
  - Gastrointestinal tube insertion [None]
  - Bone disorder [None]

NARRATIVE: CASE EVENT DATE: 201504
